FAERS Safety Report 5010653-5 (Version None)
Quarter: 2006Q2

REPORT INFORMATION
  Report Type: 
  Country: None (occurrence: None)
  Receive Date: 20060525
  Receipt Date: 20051005
  Transmission Date: 20061013
  Serious: Yes (Hospitalization)
  Sender: FDA-Public Use
  Company Number: PHBS2005FR14673

PATIENT
  Age: 19 Year
  Sex: Male
  Weight: 65 kg

DRUGS (6)
  1. CLOZAPINE [Suspect]
     Indication: SCHIZOPHRENIA
     Dosage: UNK, UNK
     Route: 065
     Dates: start: 20030206
  2. CLOZAPINE [Suspect]
     Dosage: 200 MG/D
     Route: 065
     Dates: start: 20030214
  3. CLOZAPINE [Suspect]
     Dosage: 400 MG/D
     Route: 065
  4. AMISULPRIDE [Concomitant]
     Dosage: 1200 MG/D
     Route: 065
  5. LAUDANUM [Concomitant]
     Dosage: 21.42 MG, TID
     Route: 065
  6. VALPROMIDE [Concomitant]
     Dosage: 300 MG/D
     Route: 065

REACTIONS (22)
  - ABDOMINAL DISCOMFORT [None]
  - ABDOMINAL PAIN [None]
  - BLOOD CREATINE PHOSPHOKINASE INCREASED [None]
  - BLOOD PRESSURE SYSTOLIC DECREASED [None]
  - BODY TEMPERATURE INCREASED [None]
  - COLECTOMY [None]
  - CONSTIPATION [None]
  - DIARRHOEA [None]
  - FAECAL DISIMPACTION [None]
  - FAECALOMA [None]
  - ILEECTOMY [None]
  - LAPAROTOMY [None]
  - LARGE INTESTINAL ULCER [None]
  - LARGE INTESTINAL ULCER HAEMORRHAGE [None]
  - MALAISE [None]
  - METABOLIC ACIDOSIS [None]
  - NECROSIS [None]
  - NECROTISING COLITIS [None]
  - OEDEMA MUCOSAL [None]
  - RENAL FAILURE [None]
  - SEDATION [None]
  - SHOCK [None]
